FAERS Safety Report 8867974 (Version 1)
Quarter: 2012Q4

REPORT INFORMATION
  Report Type: 
  Country: US (occurrence: US)
  Receive Date: 20121025
  Receipt Date: 20121025
  Transmission Date: 20130627
  Serious: No
  Sender: FDA-Public Use
  Company Number: US-AMGEN-USASP2012019132

PATIENT
  Age: 53 Year
  Sex: Female

DRUGS (3)
  1. ENBREL [Suspect]
     Indication: RHEUMATOID ARTHRITIS
     Dosage: 50 mg, qwk
     Dates: start: 20110707
  2. PLAQUENIL                          /00072602/ [Concomitant]
     Dosage: 2 mg, qwk
     Dates: start: 201004
  3. METHOTREXATE [Concomitant]
     Dosage: 1 mg, qwk
     Dates: start: 201004

REACTIONS (3)
  - Ovarian cyst [Not Recovered/Not Resolved]
  - Adnexa uteri pain [Not Recovered/Not Resolved]
  - Haemorrhage [Not Recovered/Not Resolved]
